FAERS Safety Report 17194333 (Version 1)
Quarter: 2019Q4

REPORT INFORMATION
  Report Type: Report from Study
  Country: RO (occurrence: RO)
  Receive Date: 20191224
  Receipt Date: 20191224
  Transmission Date: 20200122
  Serious: Yes (Other)
  Sender: FDA-Public Use
  Company Number: RO-ROCHE-2499427

PATIENT
  Sex: Female
  Weight: 44 kg

DRUGS (1)
  1. HERCEPTIN [Suspect]
     Active Substance: TRASTUZUMAB
     Indication: BREAST CANCER
     Route: 065
     Dates: start: 20190601

REACTIONS (6)
  - Loss of consciousness [Unknown]
  - Laboratory test abnormal [Unknown]
  - Malaise [Unknown]
  - Hypertension [Unknown]
  - Insomnia [Unknown]
  - Asthenia [Unknown]
